FAERS Safety Report 6830607-3 (Version None)
Quarter: 2010Q3

REPORT INFORMATION
  Report Type: 
  Country: None (occurrence: None)
  Receive Date: 20100712
  Receipt Date: 20100707
  Transmission Date: 20110219
  Serious: Yes (Other)
  Sender: FDA-Public Use
  Company Number: US-KINGPHARMUSA00001-K201000796

PATIENT
  Age: 65 Year
  Sex: Female

DRUGS (1)
  1. EPIPEN [Suspect]
     Indication: ARTHROPOD STING
     Dosage: 0.3 MG, SINGLE
     Dates: start: 20090901, end: 20090901

REACTIONS (5)
  - ACCIDENTAL EXPOSURE [None]
  - CLOSTRIDIAL INFECTION [None]
  - IMMUNE SYSTEM DISORDER [None]
  - INJECTION SITE PAIN [None]
  - SKELETAL INJURY [None]
